FAERS Safety Report 17478541 (Version 1)
Quarter: 2020Q1

REPORT INFORMATION
  Report Type: Spontaneous
  Country: JP (occurrence: JP)
  Receive Date: 20200228
  Receipt Date: 20200228
  Transmission Date: 20200409
  Serious: Yes (Hospitalization)
  Sender: FDA-Public Use
  Company Number: JP-ASTRAZENECA-2020SE26816

PATIENT
  Age: 44 Year
  Sex: Female

DRUGS (3)
  1. NOVORAPID [Concomitant]
     Active Substance: INSULIN ASPART
     Dosage: DOSE UNKNOWN
     Route: 065
     Dates: start: 201812
  2. INSULIN [Concomitant]
     Active Substance: INSULIN NOS
     Dosage: DOSE UNKNOWN
     Route: 065
  3. FORXIGA [Suspect]
     Active Substance: DAPAGLIFLOZIN
     Indication: TYPE 1 DIABETES MELLITUS
     Route: 048
     Dates: start: 20200111, end: 20200112

REACTIONS (2)
  - Product dose omission [Unknown]
  - Diabetic ketoacidosis [Recovered/Resolved]

NARRATIVE: CASE EVENT DATE: 20200112
